FAERS Safety Report 23077224 (Version 2)
Quarter: 2023Q4

REPORT INFORMATION
  Report Type: Spontaneous
  Country: JP (occurrence: JP)
  Receive Date: 20231018
  Receipt Date: 20231030
  Transmission Date: 20240109
  Serious: Yes (Life-Threatening, Hospitalization, Other)
  Sender: FDA-Public Use
  Company Number: JP-MSD-M2023-43509

PATIENT
  Age: 6 Decade
  Sex: Female

DRUGS (1)
  1. KEYTRUDA [Suspect]
     Active Substance: PEMBROLIZUMAB
     Indication: Cervix carcinoma stage IV
     Dosage: 200 MILLIGRAM, Q3W
     Route: 041
     Dates: end: 202309

REACTIONS (4)
  - Gastrointestinal perforation [Recovering/Resolving]
  - Urinary bladder haemorrhage [Recovering/Resolving]
  - Renal impairment [Recovering/Resolving]
  - Urinary bladder haematoma [Recovering/Resolving]
